FAERS Safety Report 8297973-6 (Version None)
Quarter: 2012Q2

REPORT INFORMATION
  Report Type: 
  Country: None (occurrence: None)
  Receive Date: 20120419
  Receipt Date: 20120412
  Transmission Date: 20120825
  Serious: Yes (Hospitalization)
  Sender: FDA-Public Use
  Company Number: SE-SANOFI-AVENTIS-2012SA025693

PATIENT
  Age: 52 Year
  Sex: Female

DRUGS (2)
  1. OXALIPLATIN [Suspect]
     Indication: COLON CANCER
     Dosage: FREQUENCY- SAME DAY
     Route: 042
     Dates: start: 20111017, end: 20111017
  2. FLUOROURACIL [Suspect]
     Indication: COLON CANCER
     Route: 065
     Dates: start: 20111017, end: 20111018

REACTIONS (2)
  - ENCEPHALOPATHY [None]
  - NEUTROPENIA [None]
